FAERS Safety Report 9467309 (Version 2)
Quarter: 2013Q3

REPORT INFORMATION
  Report Type: Spontaneous
  Country: US (occurrence: US)
  Receive Date: 20130821
  Receipt Date: 20130917
  Transmission Date: 20140515
  Serious: No
  Sender: FDA-Public Use
  Company Number: US-B.I. PHARMACEUTICALS,INC./RIDGEFIELD-2013-BI-24893BP

PATIENT
  Sex: Female
  Weight: 106 kg

DRUGS (2)
  1. COMBIVENT [Suspect]
     Indication: ASTHMA
     Dosage: STRENGTH: 18 MCG/103 MCG; DAILY DOSE: 144 MCG/ 824 MCG
     Dates: start: 1997
  2. QVAR [Concomitant]
     Indication: ASTHMA
     Route: 055

REACTIONS (3)
  - Age-related macular degeneration [Not Recovered/Not Resolved]
  - Age-related macular degeneration [Not Recovered/Not Resolved]
  - Off label use [Not Recovered/Not Resolved]
